FAERS Safety Report 17518379 (Version 1)
Quarter: 2020Q1

REPORT INFORMATION
  Report Type: Report from Study
  Country: ES (occurrence: ES)
  Receive Date: 20200309
  Receipt Date: 20200309
  Transmission Date: 20200409
  Serious: Yes (Other)
  Sender: FDA-Public Use
  Company Number: ES-MYLANLABS-2020M1024396

PATIENT
  Age: 85 Year
  Sex: Female

DRUGS (10)
  1. PANTOPRAZOL                        /01263201/ [Concomitant]
     Active Substance: PANTOPRAZOLE
     Dosage: UNK
  2. CLOPIDOGREL [Concomitant]
     Active Substance: CLOPIDOGREL BISULFATE
     Dosage: UNK
  3. BUDESONIDA [Concomitant]
     Active Substance: BUDESONIDE
     Dosage: UNK
  4. HEMOVAS [Concomitant]
     Dosage: UNK
  5. PANTOK [Concomitant]
     Active Substance: SIMVASTATIN
     Dosage: UNK
  6. SEGURIL [Concomitant]
     Active Substance: FUROSEMIDE
     Dosage: UNK
  7. TELMISARTAN. [Suspect]
     Active Substance: TELMISARTAN
     Indication: HYPERTENSIVE HEART DISEASE
     Dosage: 1-0-0
     Route: 048
     Dates: start: 20130808, end: 20190324
  8. BESITRAN [Concomitant]
     Active Substance: SERTRALINE HYDROCHLORIDE
     Dosage: UNK
  9. VENTOLIN [Concomitant]
     Active Substance: ALBUTEROL SULFATE
     Dosage: UNK
  10. MANIDON [Concomitant]
     Active Substance: VERAPAMIL HYDROCHLORIDE
     Dosage: UNK

REACTIONS (1)
  - Chronic kidney disease [Unknown]

NARRATIVE: CASE EVENT DATE: 2019
